FAERS Safety Report 17853129 (Version 1)
Quarter: 2020Q2

REPORT INFORMATION
  Report Type: Spontaneous
  Country: CA (occurrence: CA)
  Receive Date: 20200603
  Receipt Date: 20200603
  Transmission Date: 20200714
  Serious: Yes (Hospitalization)
  Sender: FDA-Public Use
  Company Number: CA-009507513-2006CAN000414

PATIENT
  Age: 12 Year
  Sex: Female
  Weight: 38 kg

DRUGS (14)
  1. CUBICIN [Suspect]
     Active Substance: DAPTOMYCIN
     Indication: BACTERAEMIA
  2. CELECOXIB. [Suspect]
     Active Substance: CELECOXIB
     Indication: STAPHYLOCOCCAL INFECTION
     Dosage: 2.0 MG/KG, 1 EVERY 12 HOURS
     Route: 048
  3. VANCOMYCIN [Suspect]
     Active Substance: VANCOMYCIN
     Indication: STAPHYLOCOCCAL INFECTION
     Dosage: FORMULATION: NOT SPECIFIED; 1150.0 MILLIGRAM, 1 EVERY 6 HOURS
     Route: 042
  4. VANCOMYCIN [Suspect]
     Active Substance: VANCOMYCIN
     Indication: OSTEOMYELITIS
  5. ACETAMINOPHEN. [Concomitant]
     Active Substance: ACETAMINOPHEN
     Dosage: FORMULATION: NOT SPECIFIED
     Route: 065
  6. CELECOXIB. [Suspect]
     Active Substance: CELECOXIB
     Indication: BACTERAEMIA
  7. ENOXAPARIN SODIUM. [Concomitant]
     Active Substance: ENOXAPARIN SODIUM
     Route: 065
  8. MORPHINE [Concomitant]
     Active Substance: MORPHINE
     Dosage: FORMULATION: NOT SPECIFIED
     Route: 065
  9. CUBICIN [Suspect]
     Active Substance: DAPTOMYCIN
     Indication: OSTEOMYELITIS
  10. CUBICIN [Suspect]
     Active Substance: DAPTOMYCIN
     Indication: STAPHYLOCOCCAL INFECTION
     Dosage: 7.0 MG/KG, 1 EVERY 24 HOURS
     Route: 042
  11. FAMOTIDINE. [Concomitant]
     Active Substance: FAMOTIDINE
     Dosage: FORMULATION: NOT SPECIFIED
     Route: 065
  12. CELECOXIB. [Suspect]
     Active Substance: CELECOXIB
     Indication: OSTEOMYELITIS
  13. VANCOMYCIN [Suspect]
     Active Substance: VANCOMYCIN
     Indication: BACTERAEMIA
  14. ELOCOM [Concomitant]
     Active Substance: MOMETASONE FUROATE
     Dosage: FORMULATION: NOT SPECIFIED
     Route: 065

REACTIONS (2)
  - Drug level above therapeutic [Unknown]
  - Acute kidney injury [Unknown]
